FAERS Safety Report 16994374 (Version 1)
Quarter: 2019Q4

REPORT INFORMATION
  Report Type: Spontaneous
  Country: JP (occurrence: JP)
  Receive Date: 20191105
  Receipt Date: 20191105
  Transmission Date: 20200122
  Serious: Yes (Hospitalization)
  Sender: FDA-Public Use
  Company Number: JP-ASTRAZENECA-2019SF55297

PATIENT
  Age: 79 Year
  Sex: Male

DRUGS (2)
  1. BREZTRI [Suspect]
     Active Substance: BUDESONIDE\FORMOTEROL\GLYCOPYRRONIUM
     Indication: CHRONIC OBSTRUCTIVE PULMONARY DISEASE
     Dosage: BUDESONIDE:160?G;GLYCOPYRRONIUM BROMIDE:9.0?G;FORMOTEROL FUMARATE HYDRATE:5.0?G
     Route: 055
     Dates: start: 20191004, end: 20191012
  2. NEXIUM [Suspect]
     Active Substance: ESOMEPRAZOLE MAGNESIUM
     Indication: GASTROOESOPHAGEAL REFLUX DISEASE
     Dosage: DOSE UNKNOWN
     Route: 048

REACTIONS (1)
  - Sputum retention [Recovering/Resolving]

NARRATIVE: CASE EVENT DATE: 20191012
